FAERS Safety Report 5032991-2 (Version None)
Quarter: 2006Q2

REPORT INFORMATION
  Report Type: 
  Country: None (occurrence: None)
  Receive Date: 20060622
  Receipt Date: 20060621
  Transmission Date: 20061013
  Serious: Yes (Hospitalization)
  Sender: FDA-Public Use
  Company Number: 200613335EU

PATIENT
  Age: 58 Year
  Sex: Female

DRUGS (16)
  1. NICODERM [Suspect]
     Indication: DRUG USE FOR UNKNOWN INDICATION
     Route: 062
     Dates: start: 20040101, end: 20060608
  2. NICORETTE [Suspect]
     Indication: DRUG USE FOR UNKNOWN INDICATION
     Route: 002
     Dates: start: 20060101
  3. DILTIAZEM HYDROCHLORIDE [Concomitant]
     Dates: start: 19940101
  4. ACETYLSALICYLIC ACID SRT [Concomitant]
     Indication: BLOOD DISORDER
     Dates: start: 19940101
  5. UNSPECIFIED MEDICATION [Concomitant]
     Indication: DRUG USE FOR UNKNOWN INDICATION
     Dates: start: 19940101
  6. SALBUTAMOL [Concomitant]
     Dates: start: 19940101
  7. ATORVASTATIN CALCIUM [Concomitant]
     Dates: start: 19940101
  8. RAMIPRIL [Concomitant]
     Dates: start: 19940101
  9. UNSPECIFIED MEDICATION [Concomitant]
     Indication: SLEEP DISORDER
     Dates: start: 19940101
  10. MONTELUKAST SODIUM [Concomitant]
     Indication: EMPHYSEMA
     Dates: start: 19940101
  11. INDAPAMIDE [Concomitant]
     Indication: DIURETIC THERAPY
     Dates: start: 19940101
  12. BISOPROLOL [Concomitant]
     Indication: BLOOD DISORDER
     Dates: start: 19940101
  13. SALBUTAMOL [Concomitant]
     Dates: start: 19940101
  14. RANITIDINE [Concomitant]
     Indication: GASTRIC DISORDER
     Dates: start: 19940101
  15. GLYCERYL TRINITRATE [Concomitant]
     Indication: ANGINA PECTORIS
     Dosage: 2SPR PER DAY
     Dates: start: 19940101
  16. NICOTINE [Concomitant]

REACTIONS (8)
  - ANOREXIA [None]
  - ASTHENIA [None]
  - CRYING [None]
  - DEPRESSION [None]
  - DRUG ADMINISTRATION ERROR [None]
  - DRUG INEFFECTIVE [None]
  - OVERDOSE [None]
  - VOMITING [None]
